FAERS Safety Report 4317550-9 (Version None)
Quarter: 2004Q1

REPORT INFORMATION
  Report Type: 
  Country: None (occurrence: None)
  Receive Date: 20040312
  Receipt Date: 20040305
  Transmission Date: 20041129
  Serious: Yes (Other)
  Sender: FDA-Public Use
  Company Number: USA-2002-008627

PATIENT
  Age: 45 Year
  Sex: Female

DRUGS (6)
  1. BETASERON [Suspect]
     Indication: MULTIPLE SCLEROSIS
     Dosage: 8 MIU, EVERY 2D, SUBCUTANEOUS
     Route: 058
     Dates: end: 20021124
  2. BACLOFEN [Concomitant]
  3. ROBAXIN [Concomitant]
  4. PHRENILIN FORTE (BUTALBITAL) [Concomitant]
  5. NEURONTIN [Concomitant]
  6. NASACORT [Concomitant]

REACTIONS (2)
  - INJECTION SITE ABSCESS [None]
  - PATELLA FRACTURE [None]
